FAERS Safety Report 8517515-7 (Version None)
Quarter: 2012Q3

REPORT INFORMATION
  Report Type: 
  Country: None (occurrence: None)
  Receive Date: 20120718
  Receipt Date: 20120713
  Transmission Date: 20120928
  Serious: Yes (Hospitalization)
  Sender: FDA-Public Use
  Company Number: US-FRI-1000025056

PATIENT
  Sex: Female
  Weight: 71.67 kg

DRUGS (3)
  1. VIIBRYD [Suspect]
     Dosage: 20 MG
     Route: 048
     Dates: start: 20111020, end: 20111020
  2. VIIBRYD [Suspect]
     Indication: DEPRESSION
     Dosage: 10 MG
     Route: 048
     Dates: start: 20111013, end: 20111019
  3. TRAZODONE HYDROCHLORIDE [Concomitant]
     Indication: INSOMNIA
     Dosage: 150 MG
     Route: 048

REACTIONS (2)
  - CHEST PAIN [None]
  - SEROTONIN SYNDROME [None]
